FAERS Safety Report 5725176-5 (Version None)
Quarter: 2008Q2

REPORT INFORMATION
  Report Type: 
  Country: None (occurrence: None)
  Receive Date: 20080501
  Receipt Date: 20080425
  Transmission Date: 20081010
  Serious: Yes (Other)
  Sender: FDA-Public Use
  Company Number: A0707195A

PATIENT
  Age: 6 Year
  Sex: Male

DRUGS (1)
  1. FLONASE [Suspect]
     Route: 045

REACTIONS (3)
  - AGGRESSION [None]
  - EMOTIONAL DISORDER [None]
  - PERSONALITY CHANGE [None]
